FAERS Safety Report 16563213 (Version 3)
Quarter: 2019Q4

REPORT INFORMATION
  Report Type: Spontaneous
  Country: CA (occurrence: CA)
  Receive Date: 20190711
  Receipt Date: 20191225
  Transmission Date: 20200122
  Serious: Yes (Other)
  Sender: FDA-Public Use
  Company Number: CA-CELLTRION INC.-2018CA023774

PATIENT

DRUGS (13)
  1. INFLECTRA [Suspect]
     Active Substance: INFLIXIMAB-DYYB
     Indication: CROHN^S DISEASE
     Dosage: 5 MG/KG, WEEKS 2, 6  THEN EVERY 8 WEEKS
     Route: 042
     Dates: start: 20181005
  2. INFLECTRA [Suspect]
     Active Substance: INFLIXIMAB-DYYB
     Dosage: 5 MG/KG, WEEKS 2, 6  THEN EVERY 8 WEEKS
     Route: 042
     Dates: start: 20190502
  3. MEZAVANT [Concomitant]
     Active Substance: MESALAMINE
     Dosage: UNK
     Route: 048
  4. INFLECTRA [Suspect]
     Active Substance: INFLIXIMAB-DYYB
     Dosage: 5 MG/KG, WEEKS 2, 6  THEN EVERY 8 WEEKS
     Route: 042
     Dates: start: 20181019
  5. INFLECTRA [Suspect]
     Active Substance: INFLIXIMAB-DYYB
     Dosage: 5 MG/KG, WEEKS 2, 6 THEN EVERY 8 WEEKS
     Route: 042
     Dates: start: 20181115
  6. PREDNISONE. [Concomitant]
     Active Substance: PREDNISONE
     Dosage: UNK (FOR 56 DAYS)
     Route: 065
     Dates: start: 20181005
  7. ZOPICLONE [Concomitant]
     Active Substance: ZOPICLONE
     Dosage: UNK
     Route: 065
  8. INFLECTRA [Suspect]
     Active Substance: INFLIXIMAB-DYYB
     Dosage: 5 MG/KG, WEEKS 2, 6  THEN EVERY 8 WEEKS
     Route: 042
     Dates: start: 20181115
  9. INFLECTRA [Suspect]
     Active Substance: INFLIXIMAB-DYYB
     Dosage: 5 MG/KG, WEEKS 2, 6  THEN EVERY 8 WEEKS
     Route: 042
     Dates: start: 20191212
  10. CALCIUM [Concomitant]
     Active Substance: CALCIUM
     Dosage: UNK
     Route: 048
  11. VITAMIN D 2000 [Concomitant]
     Active Substance: VITAMIN D NOS
     Dosage: 10000 UN ONCE A WEEK
     Route: 065
  12. INFLECTRA [Suspect]
     Active Substance: INFLIXIMAB-DYYB
     Dosage: 5 MG/KG, WEEKS 2, 6  THEN EVERY 8 WEEKS
     Route: 042
     Dates: start: 20190627
  13. INFLECTRA [Suspect]
     Active Substance: INFLIXIMAB-DYYB
     Dosage: 5 MG/KG, WEEKS 2, 6  THEN EVERY 8 WEEKS
     Route: 042
     Dates: start: 20191017

REACTIONS (5)
  - Heart rate irregular [Unknown]
  - Myalgia [Unknown]
  - Varicose vein [Unknown]
  - Blood pressure fluctuation [Unknown]
  - Arthralgia [Unknown]

NARRATIVE: CASE EVENT DATE: 20181019
